FAERS Safety Report 17415639 (Version 1)
Quarter: 2020Q1

REPORT INFORMATION
  Report Type: Spontaneous
  Country: FR (occurrence: FR)
  Receive Date: 20200213
  Receipt Date: 20200213
  Transmission Date: 20200409
  Serious: Yes (Life-Threatening, Hospitalization)
  Sender: FDA-Public Use
  Company Number: FR-MYLANLABS-2020M1016749

PATIENT
  Age: 20 Year
  Sex: Male
  Weight: 70 kg

DRUGS (5)
  1. SERTRALINE [Suspect]
     Active Substance: SERTRALINE HYDROCHLORIDE
     Indication: OBSESSIVE-COMPULSIVE DISORDER
     Dosage: 100 MILLIGRAM, QD
     Route: 048
     Dates: start: 2009, end: 2012
  2. ABILIFY [Suspect]
     Active Substance: ARIPIPRAZOLE
     Indication: BEHAVIOUR DISORDER
     Dosage: 5 MILLIGRAM, QD
     Route: 048
     Dates: start: 2012, end: 2017
  3. FLUOXETINE [Suspect]
     Active Substance: FLUOXETINE HYDROCHLORIDE
     Indication: OBSESSIVE-COMPULSIVE DISORDER
     Dosage: 20 MILLIGRAM, QD
     Route: 048
     Dates: start: 2009, end: 2009
  4. RISPERDAL [Suspect]
     Active Substance: RISPERIDONE
     Indication: BEHAVIOUR DISORDER
     Dosage: 2 MILLIGRAM, QD
     Route: 048
     Dates: start: 2009, end: 2012
  5. CONCERTA [Suspect]
     Active Substance: METHYLPHENIDATE HYDROCHLORIDE
     Indication: BEHAVIOUR DISORDER
     Dosage: 54 MILLIGRAM, QD
     Route: 048
     Dates: start: 2010, end: 2014

REACTIONS (2)
  - Cardiac arrest [Recovered/Resolved with Sequelae]
  - Atrioventricular block second degree [Recovered/Resolved with Sequelae]

NARRATIVE: CASE EVENT DATE: 20181123
